FAERS Safety Report 4750605-3 (Version None)
Quarter: 2005Q3

REPORT INFORMATION
  Report Type: 
  Country: None (occurrence: None)
  Receive Date: 20050823
  Receipt Date: 20050816
  Transmission Date: 20060218
  Serious: Yes (Other)
  Sender: FDA-Public Use
  Company Number: US-ROCHE-414605

PATIENT
  Age: 48 Year
  Sex: Female
  Weight: 61.7 kg

DRUGS (4)
  1. PEGASYS [Suspect]
     Route: 058
     Dates: start: 20050606
  2. COPEGUS [Suspect]
     Route: 048
     Dates: start: 20050606
  3. NEURONTIN [Concomitant]
     Indication: ANXIETY
     Route: 048
  4. HYDROCODONE [Concomitant]
     Indication: BACK PAIN
     Route: 048

REACTIONS (4)
  - BEHCET'S SYNDROME [None]
  - ORAL INTAKE REDUCED [None]
  - UVEITIS [None]
  - WEIGHT DECREASED [None]
